FAERS Safety Report 6137664-0 (Version None)
Quarter: 2009Q1

REPORT INFORMATION
  Report Type: 
  Country: None (occurrence: None)
  Receive Date: 20090331
  Receipt Date: 20090323
  Transmission Date: 20090719
  Serious: Yes (Other)
  Sender: FDA-Public Use
  Company Number: US-ASTRAZENECA-2009UW07270

PATIENT
  Sex: Male

DRUGS (1)
  1. CASODEX [Suspect]
     Route: 048

REACTIONS (1)
  - ORCHIDECTOMY [None]
